FAERS Safety Report 4304923-3 (Version None)
Quarter: 2004Q1

REPORT INFORMATION
  Report Type: 
  Country: None (occurrence: None)
  Receive Date: 20040226
  Receipt Date: 20040113
  Transmission Date: 20041129
  Serious: No
  Sender: FDA-Public Use
  Company Number: US-GLAXOSMITHKLINE-A0493116A

PATIENT
  Age: 43 Year
  Sex: Female

DRUGS (1)
  1. WELLBUTRIN [Suspect]
     Indication: DEPRESSION
     Dosage: 150MG PER DAY
     Route: 048
     Dates: start: 20031210

REACTIONS (4)
  - DRY MOUTH [None]
  - ENERGY INCREASED [None]
  - FEELING JITTERY [None]
  - PALPITATIONS [None]
